FAERS Safety Report 6870905-0 (Version None)
Quarter: 2010Q3

REPORT INFORMATION
  Report Type: 
  Country: None (occurrence: None)
  Receive Date: 20100723
  Receipt Date: 20100719
  Transmission Date: 20110219
  Serious: Yes (Death)
  Sender: FDA-Public Use
  Company Number: CA-ASTRAZENECA-2010SE33547

PATIENT
  Sex: Male
  Weight: 90 kg

DRUGS (15)
  1. SYMBICORT [Suspect]
     Dosage: 2 DOSAGE FORM, UNKNOWN FREQUENCY.
     Route: 055
  2. XOLAIR [Suspect]
     Route: 058
  3. OMEPRAZOLE [Concomitant]
     Route: 065
  4. RAMIPRIL [Concomitant]
     Route: 065
  5. CLONAZEPAM [Concomitant]
     Route: 065
  6. COVERSYL [Concomitant]
     Route: 065
  7. EZETROL [Concomitant]
     Route: 065
  8. INSULIN [Concomitant]
     Route: 065
  9. HUMULIN N [Concomitant]
     Route: 065
  10. LIPITOR [Concomitant]
     Route: 065
  11. METFORMIN [Concomitant]
     Route: 065
  12. SINGULAIR [Concomitant]
     Route: 065
  13. TRAZODONE [Concomitant]
     Route: 065
  14. TYLENOL [Concomitant]
     Route: 065
  15. VERAPAMIL HCL [Concomitant]
     Route: 065

REACTIONS (1)
  - CARDIAC DEATH [None]
